FAERS Safety Report 4468062-3 (Version None)
Quarter: 2004Q4

REPORT INFORMATION
  Report Type: 
  Country: None (occurrence: None)
  Receive Date: 20041004
  Receipt Date: 20040921
  Transmission Date: 20050328
  Serious: Yes (Death)
  Sender: FDA-Public Use
  Company Number: GB-2004-032306

PATIENT
  Sex: 0

DRUGS (1)
  1. CAMPATH/MABCAMPATH (ALEMTUZUMAB) AMPULE [Suspect]
     Indication: T-CELL PROLYMPHOCYTIC LEUKAEMIA
     Dates: start: 20040701

REACTIONS (1)
  - GENERAL PHYSICAL HEALTH DETERIORATION [None]
